FAERS Safety Report 8607437-5 (Version None)
Quarter: 2012Q3

REPORT INFORMATION
  Report Type: 
  Country: None (occurrence: None)
  Receive Date: 20120821
  Receipt Date: 20120814
  Transmission Date: 20120928
  Serious: Yes (Death, Hospitalization)
  Sender: FDA-Public Use
  Company Number: BR-US-EMD SERONO, INC.-7116265

PATIENT
  Sex: Male

DRUGS (3)
  1. CAPTOPRIL [Concomitant]
     Indication: PRODUCT USED FOR UNKNOWN INDICATION
  2. REBIF [Suspect]
     Indication: PRODUCT USED FOR UNKNOWN INDICATION
     Dates: start: 20111128, end: 20120730
  3. DRAMIN [Concomitant]
     Indication: PRODUCT USED FOR UNKNOWN INDICATION

REACTIONS (10)
  - LUNG NEOPLASM MALIGNANT [None]
  - AGEUSIA [None]
  - SOMNOLENCE [None]
  - BRAIN NEOPLASM [None]
  - MALAISE [None]
  - DYSPEPSIA [None]
  - WEIGHT DECREASED [None]
  - VOMITING [None]
  - COUGH [None]
  - EATING DISORDER [None]
